FAERS Safety Report 7526342-9 (Version None)
Quarter: 2011Q2

REPORT INFORMATION
  Report Type: 
  Country: None (occurrence: None)
  Receive Date: 20110603
  Receipt Date: 20110603
  Transmission Date: 20111010
  Serious: No
  Sender: FDA-Public Use
  Company Number: None

PATIENT
  Sex: Female
  Weight: 73.4827 kg

DRUGS (1)
  1. TOPIRAMATE [Suspect]
     Indication: MIGRAINE
     Dosage: 100MG EVERY MORNING PO
     Route: 048

REACTIONS (43)
  - COORDINATION ABNORMAL [None]
  - ASTHENIA [None]
  - TINNITUS [None]
  - LACRIMATION INCREASED [None]
  - ABDOMINAL PAIN UPPER [None]
  - DECREASED APPETITE [None]
  - MOOD SWINGS [None]
  - DYSGEUSIA [None]
  - BACK PAIN [None]
  - COUGH [None]
  - HYPERHIDROSIS [None]
  - BURNING SENSATION [None]
  - DYSPHAGIA [None]
  - HAIR GROWTH ABNORMAL [None]
  - INITIAL INSOMNIA [None]
  - VISION BLURRED [None]
  - FATIGUE [None]
  - ILL-DEFINED DISORDER [None]
  - VERTIGO [None]
  - HYPOAESTHESIA [None]
  - MENTAL IMPAIRMENT [None]
  - MEMORY IMPAIRMENT [None]
  - IRRITABILITY [None]
  - THIRST [None]
  - MYALGIA [None]
  - PARAESTHESIA [None]
  - CONFUSIONAL STATE [None]
  - NERVOUSNESS [None]
  - DYSPEPSIA [None]
  - NAUSEA [None]
  - PRURITUS [None]
  - HEADACHE [None]
  - DISTURBANCE IN ATTENTION [None]
  - FLATULENCE [None]
  - ALOPECIA [None]
  - DIPLOPIA [None]
  - POLLAKIURIA [None]
  - SPEECH DISORDER [None]
  - SOMNOLENCE [None]
  - TREMOR [None]
  - BONE PAIN [None]
  - MIDDLE INSOMNIA [None]
  - DYSPNOEA [None]
